FAERS Safety Report 6037802-4 (Version None)
Quarter: 2009Q1

REPORT INFORMATION
  Report Type: 
  Country: None (occurrence: None)
  Receive Date: 20090113
  Receipt Date: 20090107
  Transmission Date: 20090719
  Serious: Yes (Life-Threatening, Hospitalization)
  Sender: FDA-Public Use
  Company Number: 2008-00051

PATIENT
  Age: 42 Year
  Sex: Male
  Weight: 82 kg

DRUGS (5)
  1. VELCADE [Suspect]
     Indication: MULTIPLE MYELOMA
     Dosage: ; 1 MG/M2;
     Dates: start: 20071126, end: 20071221
  2. DEXAMETHASONE [Concomitant]
  3. PIPERACILLIN SODIUM AND TAZOBACTAM SODIUM [Concomitant]
  4. .. [Concomitant]
  5. ALLOPURINOL [Concomitant]

REACTIONS (5)
  - DERMATITIS EXFOLIATIVE [None]
  - HEPATIC FUNCTION ABNORMAL [None]
  - INFECTION [None]
  - MULTIPLE MYELOMA [None]
  - RENAL FAILURE [None]
